FAERS Safety Report 7036927-4 (Version None)
Quarter: 2010Q4

REPORT INFORMATION
  Report Type: 
  Country: None (occurrence: None)
  Receive Date: 20101011
  Receipt Date: 20101004
  Transmission Date: 20110411
  Serious: Yes (Hospitalization)
  Sender: FDA-Public Use
  Company Number: US-JNJFOC-20101001418

PATIENT
  Age: 53 Year
  Sex: Male
  Weight: 72.12 kg

DRUGS (2)
  1. PEPCID COMPLETE BERRY [Suspect]
     Indication: DYSPEPSIA
     Route: 048
  2. PEPCID COMPLETE BERRY [Suspect]
     Route: 048

REACTIONS (5)
  - ABDOMINAL PAIN UPPER [None]
  - BLOOD PRESSURE INCREASED [None]
  - BREATH ODOUR [None]
  - DIARRHOEA [None]
  - THERAPEUTIC RESPONSE DECREASED [None]
